FAERS Safety Report 4950171-3 (Version None)
Quarter: 2006Q1

REPORT INFORMATION
  Report Type: 
  Country: None (occurrence: None)
  Receive Date: 20060316
  Receipt Date: 20060307
  Transmission Date: 20060701
  Serious: Yes (Hospitalization)
  Sender: FDA-Public Use
  Company Number: 200610308BVD

PATIENT
  Age: 61 Year
  Sex: Male
  Weight: 94 kg

DRUGS (6)
  1. SORAFENIB [Suspect]
     Indication: HEPATIC NEOPLASM MALIGNANT
     Dosage: 400 MG, BID, ORAL
     Route: 048
     Dates: start: 20060130, end: 20060306
  2. MARCUMAR [Concomitant]
  3. ENOXAPARIN SODIUM [Concomitant]
  4. PANTOZOL [Concomitant]
  5. XANEF [Concomitant]
  6. BELOC ZOK [Concomitant]

REACTIONS (1)
  - GENERAL PHYSICAL HEALTH DETERIORATION [None]
